FAERS Safety Report 5927710-9 (Version None)
Quarter: 2008Q4

REPORT INFORMATION
  Report Type: 
  Country: None (occurrence: None)
  Receive Date: 20081020
  Receipt Date: 20081013
  Transmission Date: 20090506
  Serious: Yes (Other)
  Sender: FDA-Public Use
  Company Number: 2008SP020812

PATIENT
  Age: 67 Year
  Sex: Female

DRUGS (2)
  1. CLARITIN [Suspect]
     Indication: OFF LABEL USE
     Dosage: 10 MG, ONCE; PO
     Route: 048
     Dates: start: 20080916
  2. CLARITIN [Suspect]
     Indication: SINUSITIS
     Dosage: 10 MG, ONCE; PO
     Route: 048
     Dates: start: 20080916

REACTIONS (2)
  - CONSTIPATION [None]
  - MYOCARDIAL INFARCTION [None]
